FAERS Safety Report 8334036-5 (Version None)
Quarter: 2012Q2

REPORT INFORMATION
  Report Type: 
  Country: None (occurrence: None)
  Receive Date: 20120503
  Receipt Date: 20120423
  Transmission Date: 20120825
  Serious: Yes (Death, Other)
  Sender: FDA-Public Use
  Company Number: FR-ROCHE-1063599

PATIENT

DRUGS (3)
  1. IRINOTECAN HCL [Suspect]
     Indication: METASTATIC NEOPLASM
     Route: 042
  2. XELODA [Suspect]
     Indication: METASTATIC NEOPLASM
     Dosage: D1 TO D7, FIVE DOSE LEVELS:2000; 2500; 3000; 3500, AND 4000 MG/M2/DAY
     Route: 048
  3. OXALIPLATIN [Suspect]
     Indication: METASTATIC NEOPLASM
     Dosage: OVER 2 HOURS ON DAY 1
     Route: 042

REACTIONS (6)
  - NEUTROPENIA [None]
  - LUNG DISORDER [None]
  - VOMITING [None]
  - NAUSEA [None]
  - DIARRHOEA [None]
  - FEBRILE NEUTROPENIA [None]
